FAERS Safety Report 15820376 (Version 1)
Quarter: 2019Q1

REPORT INFORMATION
  Report Type: Spontaneous
  Country: DE (occurrence: DE)
  Receive Date: 20190114
  Receipt Date: 20190114
  Transmission Date: 20190417
  Serious: Yes (Other)
  Sender: FDA-Public Use
  Company Number: DE-009507513-1901DEU001822

PATIENT
  Age: 91 Year
  Sex: Female

DRUGS (1)
  1. REMERGIL SOLTAB [Suspect]
     Active Substance: MIRTAZAPINE
     Indication: DEPRESSION
     Dosage: ONE 30 MG TABLET, THREE TIMES A DAY
     Route: 048
     Dates: start: 20170105

REACTIONS (2)
  - Overdose [Unknown]
  - Polyneuropathy [Unknown]

NARRATIVE: CASE EVENT DATE: 201701
